FAERS Safety Report 6407866-4 (Version None)
Quarter: 2009Q4

REPORT INFORMATION
  Report Type: 
  Country: None (occurrence: None)
  Receive Date: 20091015
  Receipt Date: 20091006
  Transmission Date: 20100525
  Serious: Yes (Congenital Anomaly, Other)
  Sender: FDA-Public Use
  Company Number: 2009US000580

PATIENT
  Sex: Male
  Weight: 1.3 kg

DRUGS (6)
  1. PROGRAF [Suspect]
     Indication: DRUG EXPOSURE DURING PREGNANCY
     Dosage: 2 MG, BID, ORAL; 3 MG, BID, ORAL
     Route: 048
  2. AZATHIOPRINE [Concomitant]
  3. PREDNISONE TAB [Concomitant]
  4. METOPROLOL (METOPROLOL) [Concomitant]
  5. HYDRALAZINE HCL [Concomitant]
  6. PRENATAL VITAMINS (TOCOPHEROL, NICOTINIC ACID, VITAMIN D NOS, MINERALS [Concomitant]

REACTIONS (12)
  - APGAR SCORE LOW [None]
  - ATRIAL SEPTAL DEFECT [None]
  - BRADYCARDIA [None]
  - BREECH PRESENTATION [None]
  - CAESAREAN SECTION [None]
  - CEREBRAL PALSY [None]
  - CONGENITAL RENAL CYST [None]
  - HEPATIC CYST [None]
  - MATERNAL DRUGS AFFECTING FOETUS [None]
  - PATENT DUCTUS ARTERIOSUS [None]
  - PREMATURE BABY [None]
  - VENTRICULAR SEPTAL DEFECT [None]
